FAERS Safety Report 10210859 (Version 4)
Quarter: 2015Q1

REPORT INFORMATION
  Report Type: Spontaneous
  Country: US (occurrence: US)
  Receive Date: 20140602
  Receipt Date: 20150224
  Transmission Date: 20150720
  Serious: Yes (Death, Hospitalization, Other)
  Sender: FDA-Public Use
  Company Number: US-009507513-1406USA000517

PATIENT
  Sex: Female
  Weight: 65.76 kg

DRUGS (2)
  1. JANUMET [Suspect]
     Active Substance: METFORMIN HYDROCHLORIDE\SITAGLIPTIN PHOSPHATE
     Indication: TYPE 2 DIABETES MELLITUS
     Dosage: 50/500 MG, BID
     Route: 048
     Dates: start: 20090714, end: 20120405
  2. JANUVIA [Suspect]
     Active Substance: SITAGLIPTIN PHOSPHATE
     Indication: DIABETES MELLITUS
     Dosage: 50 MG, BID
     Route: 048

REACTIONS (25)
  - Pneumonia [Unknown]
  - Transfusion related complication [Unknown]
  - Pancreatitis [Unknown]
  - Splenic vein occlusion [Unknown]
  - Hyponatraemia [Unknown]
  - Dehydration [Unknown]
  - Temperature intolerance [Unknown]
  - Arthralgia [Unknown]
  - Adverse event [Unknown]
  - Bacterial test positive [Unknown]
  - International normalised ratio increased [Unknown]
  - Metastases to lung [Unknown]
  - Goitre [Unknown]
  - Pulmonary mass [Unknown]
  - Diabetes mellitus inadequate control [Unknown]
  - Anaemia [Unknown]
  - Catheter placement [Unknown]
  - Constipation [Unknown]
  - Deep vein thrombosis [Not Recovered/Not Resolved]
  - Paraesthesia [Unknown]
  - Cholelithiasis [Unknown]
  - Pancreatic carcinoma metastatic [Fatal]
  - Metastases to liver [Unknown]
  - Anuria [Unknown]
  - Hypertension [Unknown]

NARRATIVE: CASE EVENT DATE: 201007
